FAERS Safety Report 7267716-3 (Version None)
Quarter: 2011Q1

REPORT INFORMATION
  Report Type: 
  Country: None (occurrence: None)
  Receive Date: 20110201
  Receipt Date: 20110125
  Transmission Date: 20110831
  Serious: Yes (Other)
  Sender: FDA-Public Use
  Company Number: US-PFIZER INC-2011017892

PATIENT
  Sex: Female
  Weight: 68 kg

DRUGS (5)
  1. CELEBREX [Suspect]
     Indication: INFLAMMATION
     Dosage: 200 MG, 2X/DAY
     Route: 048
     Dates: start: 20110113, end: 20110122
  2. HYDROMORPHONE [Concomitant]
     Indication: INFLAMMATION
     Dosage: UNK
  3. PAXIL [Concomitant]
     Indication: PANIC ATTACK
     Dosage: UNK
  4. OXYCODONE [Concomitant]
     Indication: INFLAMMATION
     Dosage: UNK
  5. ZOCOR [Concomitant]
     Indication: BLOOD CHOLESTEROL INCREASED
     Dosage: UNK

REACTIONS (1)
  - RASH GENERALISED [None]
